FAERS Safety Report 16115275 (Version 1)
Quarter: 2019Q1

REPORT INFORMATION
  Report Type: Report from Study
  Country: JP (occurrence: JP)
  Receive Date: 20190325
  Receipt Date: 20190325
  Transmission Date: 20190418
  Serious: Yes (Other)
  Sender: FDA-Public Use
  Company Number: JP-PFIZER INC-2019034530

PATIENT

DRUGS (1)
  1. METHOTREXATE SODIUM. [Suspect]
     Active Substance: METHOTREXATE SODIUM
     Indication: LYMPHOMA
     Dosage: CYCLIC, (HIGH-DOSE)
     Route: 042

REACTIONS (2)
  - Drug clearance decreased [Recovered/Resolved]
  - Nephropathy toxic [Recovered/Resolved]
